FAERS Safety Report 7266508-9 (Version None)
Quarter: 2011Q1

REPORT INFORMATION
  Report Type: 
  Country: None (occurrence: None)
  Receive Date: 20110131
  Receipt Date: 20110125
  Transmission Date: 20110831
  Serious: Yes (Disabling, Other)
  Sender: FDA-Public Use
  Company Number: FR-PFIZER INC-2010152296

PATIENT
  Age: 36 Year
  Sex: Male
  Weight: 100 kg

DRUGS (3)
  1. CHAMPIX [Suspect]
     Indication: SMOKING CESSATION THERAPY
     Dosage: 2MG PER DAY
     Route: 048
     Dates: start: 20091231, end: 20100228
  2. CHAMPIX [Suspect]
     Dosage: UNK
     Dates: start: 20100101
  3. CHAMPIX [Suspect]
     Dosage: UNK
     Dates: start: 20100201

REACTIONS (1)
  - APHTHOUS STOMATITIS [None]
